FAERS Safety Report 5933901-3 (Version None)
Quarter: 2008Q4

REPORT INFORMATION
  Report Type: 
  Country: None (occurrence: None)
  Receive Date: 20081029
  Receipt Date: 20080909
  Transmission Date: 20090506
  Serious: Yes (Other)
  Sender: FDA-Public Use
  Company Number: DE-BRISTOL-MYERS SQUIBB COMPANY-14384093

PATIENT
  Age: 49 Year
  Sex: Male
  Weight: 120 kg

DRUGS (1)
  1. ABILIFY [Suspect]
     Dosage: TAKEN 20 TABS OF 30 MG.
     Route: 048

REACTIONS (3)
  - AGITATION [None]
  - DRUG ABUSE [None]
  - OVERDOSE [None]
